FAERS Safety Report 12064526 (Version 1)
Quarter: 2016Q1

REPORT INFORMATION
  Report Type: Spontaneous
  Country: US (occurrence: US)
  Receive Date: 20160210
  Receipt Date: 20160210
  Transmission Date: 20160526
  Serious: No
  Sender: FDA-Public Use
  Company Number: US-ALLERGAN-1307542US

PATIENT
  Sex: Female

DRUGS (1)
  1. BOTOX [Suspect]
     Active Substance: ONABOTULINUMTOXINA
     Indication: MIGRAINE
     Dosage: UNK, SINGLE
     Dates: start: 20130516, end: 20130516

REACTIONS (5)
  - Vomiting [Unknown]
  - Swelling face [Recovered/Resolved]
  - Facial pain [Not Recovered/Not Resolved]
  - Nausea [Unknown]
  - Headache [Unknown]
